FAERS Safety Report 10063229 (Version 2)
Quarter: 2014Q2

REPORT INFORMATION
  Report Type: Spontaneous
  Country: IT (occurrence: IT)
  Receive Date: 20140407
  Receipt Date: 20140515
  Transmission Date: 20141212
  Serious: Yes (Hospitalization)
  Sender: FDA-Public Use
  Company Number: IT-SA-2014SA038997

PATIENT
  Age: 66 Year
  Sex: Male

DRUGS (3)
  1. OXALIPLATIN [Suspect]
     Indication: COLON CANCER
     Route: 042
     Dates: start: 20131202, end: 20140303
  2. ERBITUX [Suspect]
     Indication: COLON CANCER
     Route: 042
     Dates: start: 20131202, end: 20140324
  3. IRINOTECAN HYDROCHLORIDE [Suspect]
     Indication: COLON CANCER STAGE IV
     Route: 042
     Dates: start: 20131202, end: 20140317

REACTIONS (1)
  - Atrial fibrillation [Recovered/Resolved]
